FAERS Safety Report 5569422-X (Version None)
Quarter: 2007Q4

REPORT INFORMATION
  Report Type: 
  Country: None (occurrence: None)
  Receive Date: 20071220
  Receipt Date: 20070111
  Transmission Date: 20080405
  Serious: Yes (Hospitalization)
  Sender: FDA-Public Use
  Company Number: US-ABBOTT-06P-163-0343100-00

PATIENT
  Age: 46 Year
  Sex: Female

DRUGS (1)
  1. DILAUDID AMPULE 1 MG/ML [Suspect]
     Indication: DRUG USE FOR UNKNOWN INDICATION
     Dates: start: 20060905, end: 20060905

REACTIONS (1)
  - RESPIRATORY DEPRESSION [None]
